FAERS Safety Report 7649016-2 (Version None)
Quarter: 2011Q3

REPORT INFORMATION
  Report Type: 
  Country: None (occurrence: None)
  Receive Date: 20110802
  Receipt Date: 20110720
  Transmission Date: 20111222
  Serious: Yes (Other)
  Sender: FDA-Public Use
  Company Number: US-ASTRAZENECA-2007UW27059

PATIENT
  Age: 46 Year
  Sex: Male

DRUGS (22)
  1. SEROQUEL [Suspect]
     Dosage: 100 MG TO 600 MG
     Route: 048
     Dates: start: 20020222
  2. EFFEXOR [Concomitant]
     Dates: start: 20040217
  3. MORPHINE SULFATE [Concomitant]
     Dosage: 45 - 75 MG DAILY
     Dates: start: 20060317
  4. SEROQUEL [Suspect]
     Dosage: 250 - 700 MG DAILY
     Route: 048
     Dates: start: 20020101, end: 20070426
  5. HALDOL [Concomitant]
     Dates: start: 20040101
  6. TOPROL-XL [Concomitant]
     Indication: CORONARY ARTERY DISEASE
     Dates: start: 20021223
  7. METOPROLOL TARTRATE [Concomitant]
     Dosage: 50 MG, TAKE 1/2 TABLET TWICE A DAY
     Dates: start: 20020816
  8. WELLBUTRIN SR [Concomitant]
     Dates: start: 20020101
  9. TOPROL-XL [Concomitant]
     Indication: HEPATIC CIRRHOSIS
     Dates: start: 20021223
  10. ACTOS [Concomitant]
     Indication: TYPE 2 DIABETES MELLITUS
     Dates: start: 20031208
  11. KEPPRA [Concomitant]
     Indication: CONVULSION
     Dosage: 1500 - 3000 MG DAILY
     Dates: start: 20060317
  12. ALPRAZOLAM [Concomitant]
     Dosage: 1 MG, TAKE 1/2 TABLET DAILY AS NEEDED
     Dates: start: 20020531
  13. LEXAPRO [Concomitant]
     Dates: start: 20040101
  14. TOPROL-XL [Concomitant]
     Indication: HYPERTENSION
     Dates: start: 20021223
  15. AMBIEN [Concomitant]
     Indication: INSOMNIA
     Dosage: 10 - 12.5 MG AT NIGHT
     Dates: start: 20060317
  16. LIPITOR [Concomitant]
     Dates: start: 20060317
  17. NEURONTIN [Concomitant]
     Indication: DIABETIC NEUROPATHY
     Dosage: 600 - 1800 MG AT NIGHT
     Dates: start: 20060317
  18. DEPAKOTE ER [Concomitant]
     Dates: start: 20030101
  19. DEPAKOTE ER [Concomitant]
     Dates: start: 20021223
  20. OXYCODONE HCL [Concomitant]
     Dosage: 5 MG, TAKE 1 TO 2 TABLETS BY MOUTH EVERY 8
     Route: 048
     Dates: start: 20070320
  21. SEROQUEL [Suspect]
     Indication: DEPRESSION
     Dosage: VARIOUS DOSES INCLUDING BUT NOT LIMITED TO 100 MG, 200 MG, 300 MG, 600 MG
     Route: 048
     Dates: start: 19920101, end: 20070301
  22. MORPHINE SULFATE [Concomitant]
     Dosage: 30 MG, TAKE 1 TABLET BY MOUTH TWICE A DAY
     Route: 048
     Dates: start: 20070110

REACTIONS (16)
  - TYPE 1 DIABETES MELLITUS [None]
  - LIVER DISORDER [None]
  - DIABETES MELLITUS [None]
  - HEPATITIS [None]
  - HEPATIC CIRRHOSIS [None]
  - DIABETIC NEUROPATHY [None]
  - HEPATIC ENCEPHALOPATHY [None]
  - COMA HEPATIC [None]
  - CONVULSION [None]
  - GRAND MAL CONVULSION [None]
  - LIVER FUNCTION TEST ABNORMAL [None]
  - DIABETES MELLITUS INADEQUATE CONTROL [None]
  - HEPATITIS C [None]
  - WEIGHT INCREASED [None]
  - TYPE 2 DIABETES MELLITUS [None]
  - BLOOD GLUCOSE INCREASED [None]
